FAERS Safety Report 9604561 (Version 2)
Quarter: 2013Q4

REPORT INFORMATION
  Report Type: Spontaneous
  Country: US (occurrence: US)
  Receive Date: 20131008
  Receipt Date: 20131214
  Transmission Date: 20140711
  Serious: No
  Sender: FDA-Public Use
  Company Number: US-B.I. PHARMACEUTICALS,INC./RIDGEFIELD-2013-BI-30691BP

PATIENT
  Sex: Female
  Weight: 86 kg

DRUGS (10)
  1. SPIRIVA [Suspect]
     Indication: CHRONIC OBSTRUCTIVE PULMONARY DISEASE
     Dosage: 18 MCG
     Route: 055
     Dates: start: 2010
  2. PROGESTERONE [Concomitant]
     Indication: HOT FLUSH
     Dosage: 200 MG
     Route: 048
     Dates: start: 2013
  3. AMLODIPINE [Concomitant]
     Indication: HYPERTENSION
     Dosage: 5 MG
     Route: 048
     Dates: start: 2008
  4. CITALOPRAM [Concomitant]
     Indication: DEPRESSION
     Dosage: 40 MG
     Route: 048
     Dates: start: 2005
  5. OMEPRAZOLE [Concomitant]
     Indication: GASTROOESOPHAGEAL REFLUX DISEASE
     Dosage: 40 MG
     Route: 048
     Dates: start: 2011
  6. SUPER B COMPLEX [Concomitant]
     Dosage: 1 ANZ
     Route: 048
  7. MAGNESIUM [Concomitant]
     Dosage: 1 ANZ
     Route: 048
  8. CALCIUM D3 [Concomitant]
     Dosage: 600 MG
     Route: 048
  9. IBUPROFEN [Concomitant]
     Indication: ARTHRALGIA
     Route: 048
     Dates: start: 2007
  10. MULTIVITAMIN [Concomitant]
     Dosage: 1 ANZ
     Route: 048

REACTIONS (2)
  - Dyspnoea [Not Recovered/Not Resolved]
  - Dry mouth [Unknown]
